FAERS Safety Report 25125611 (Version 1)
Quarter: 2025Q1

REPORT INFORMATION
  Report Type: Spontaneous
  Country: US (occurrence: US)
  Receive Date: 20250326
  Receipt Date: 20250326
  Transmission Date: 20250408
  Serious: Yes (Other)
  Sender: CSL BEHRING
  Company Number: US-BEH-2025200121

PATIENT
  Age: 62 Year
  Sex: Female

DRUGS (26)
  1. HIZENTRA [Suspect]
     Active Substance: HUMAN IMMUNOGLOBULIN G
     Indication: Immunodeficiency
     Dosage: 1 G,(5 ML) QW
     Route: 058
     Dates: start: 20230725
  2. HIZENTRA [Suspect]
     Active Substance: HUMAN IMMUNOGLOBULIN G
     Dosage: 4 G,(20 ML) QW
     Route: 058
     Dates: start: 20230725
  3. ALBUTEROL [Concomitant]
     Active Substance: ALBUTEROL
  4. ALLEGRA [Concomitant]
     Active Substance: FEXOFENADINE HYDROCHLORIDE
  5. AMITRIPTYLINE [Concomitant]
     Active Substance: AMITRIPTYLINE
  6. BUDESONIDE [Concomitant]
     Active Substance: BUDESONIDE
  7. BUMETANIDE [Concomitant]
     Active Substance: BUMETANIDE
  8. CALCIUM [Concomitant]
     Active Substance: CALCIUM
  9. DEXAMETHASONE [Concomitant]
     Active Substance: DEXAMETHASONE
  10. ELIQUIS [Concomitant]
     Active Substance: APIXABAN
  11. FERAHEME [Concomitant]
     Active Substance: FERUMOXYTOL NON-STOICHIOMETRIC MAGNETITE
  12. FLONASE [Concomitant]
     Active Substance: FLUTICASONE PROPIONATE
  13. FOLIC ACID [Concomitant]
     Active Substance: FOLIC ACID
  14. LIPITOR [Concomitant]
     Active Substance: ATORVASTATIN CALCIUM
  15. LYRICA [Concomitant]
     Active Substance: PREGABALIN
  16. METOPROLOL TARTRATE [Concomitant]
     Active Substance: METOPROLOL TARTRATE
  17. MIDODRINE [Concomitant]
     Active Substance: MIDODRINE
  18. MIRALAX [Concomitant]
     Active Substance: POLYETHYLENE GLYCOL 3350
  19. POTASSIUM CITRATE [Concomitant]
     Active Substance: POTASSIUM CITRATE
  20. PROTONIX [Concomitant]
     Active Substance: PANTOPRAZOLE SODIUM
  21. SINGULAIR [Concomitant]
     Active Substance: MONTELUKAST SODIUM
  22. TEZSPIRE [Concomitant]
     Active Substance: TEZEPELUMAB-EKKO
  23. TOPROL XL [Concomitant]
     Active Substance: METOPROLOL SUCCINATE
  24. VALTREX [Concomitant]
     Active Substance: VALACYCLOVIR HYDROCHLORIDE
  25. VITAMIN D [Concomitant]
     Active Substance: VITAMIN D NOS
  26. XOPENEX HFA [Concomitant]
     Active Substance: LEVALBUTEROL TARTRATE

REACTIONS (3)
  - Pneumonitis [Not Recovered/Not Resolved]
  - COVID-19 [Not Recovered/Not Resolved]
  - Upper respiratory tract infection [Not Recovered/Not Resolved]

NARRATIVE: CASE EVENT DATE: 20250223
